FAERS Safety Report 4602666-X (Version None)
Quarter: 2005Q1

REPORT INFORMATION
  Report Type: 
  Country: None (occurrence: None)
  Receive Date: 20050307
  Receipt Date: 20050221
  Transmission Date: 20050727
  Serious: Yes (Life-Threatening, Hospitalization, Other)
  Sender: FDA-Public Use
  Company Number: 2005027311

PATIENT
  Age: 80 Year
  Sex: Male

DRUGS (16)
  1. DIFLUCAN [Suspect]
     Indication: PULMONARY MYCOSIS
     Dosage: 100 MG (100 MG, 1 IN 1 D), ORAL
     Route: 048
     Dates: start: 20050205, end: 20050207
  2. TEICOPLANIN (TEICOPLANIN) [Suspect]
     Indication: STAPHYLOCOCCAL INFECTION
     Dosage: 400 MG (200 MG, 2 IN 1 D), INTRAVENOUS
     Route: 042
     Dates: start: 20050205, end: 20050207
  3. PIP/TAZO (PIPERACILLIN SODIUM, TAZOBACTAM SODIM) [Suspect]
     Indication: PNEUMONIA BACTERIAL
     Dosage: 5 GRAM (2.5 GRAM , 2 IN 1 D), INTRAVENOUS
     Route: 042
     Dates: start: 20050205, end: 20050206
  4. LOXOPROFEN SODIUM (LOXOPROFEN SODIUM) [Suspect]
     Indication: PHARYNGOLARYNGEAL PAIN
     Dosage: 180 MG (60 MG, 3 IN 1 D), ORAL
     Route: 048
     Dates: start: 20050206, end: 20050206
  5. GALENIC /PANIPENEM/BETAMIPRON/(BETAMIPRON, PANIPENEM) [Concomitant]
  6. MINOCYCLINE HYDROCHLORIDE [Concomitant]
  7. CEFTRIAXONE [Concomitant]
  8. VERAPAMIL HCL [Concomitant]
  9. CILOSTAZOL [Concomitant]
  10. DROXIDOPA (DROXIDOPA) [Concomitant]
  11. SINEMET [Concomitant]
  12. CABERGOLINE 9CABERGOLINE) [Concomitant]
  13. TORSEMIDE [Concomitant]
  14. ZOLPIDEM TARTRATE [Concomitant]
  15. OXYBUTYNIN CHLORIDE [Concomitant]
  16. BIOFERMIN (BACILLUS SUBTILLIS, LACTOBACILLUS [Concomitant]

REACTIONS (7)
  - BLOOD PRESSURE DECREASED [None]
  - DEHYDRATION [None]
  - HAEMODIALYSIS [None]
  - ORAL INTAKE REDUCED [None]
  - PHARYNGOLARYNGEAL PAIN [None]
  - RENAL FAILURE ACUTE [None]
  - WHITE BLOOD CELL COUNT INCREASED [None]
